FAERS Safety Report 19260624 (Version 1)
Quarter: 2021Q2

REPORT INFORMATION
  Report Type: Spontaneous
  Country: US (occurrence: US)
  Receive Date: 20210514
  Receipt Date: 20210514
  Transmission Date: 20210717
  Serious: No
  Sender: FDA-Public Use
  Company Number: US-SUN PHARMACEUTICAL INDUSTRIES LTD-2020R1-267740

PATIENT
  Sex: Male

DRUGS (4)
  1. ILUMYA [Suspect]
     Active Substance: TILDRAKIZUMAB-ASMN
     Dosage: 100 MILLIGRAM, NOW EVERY 3 MONTHS
     Route: 065
     Dates: start: 20200824
  2. ILUMYA [Suspect]
     Active Substance: TILDRAKIZUMAB-ASMN
     Indication: PSORIASIS
     Dosage: 100 MILLIGRAM
     Route: 065
     Dates: start: 20200506
  3. ILUMYA [Suspect]
     Active Substance: TILDRAKIZUMAB-ASMN
     Dosage: 100 MILLIGRAM
     Route: 065
     Dates: start: 20200603
  4. ILUMYA [Suspect]
     Active Substance: TILDRAKIZUMAB-ASMN
     Dosage: 100 MILLIGRAM, NOW EVERY 3 MONTHS
     Route: 065
     Dates: start: 20201116

REACTIONS (1)
  - Pruritus [Recovering/Resolving]

NARRATIVE: CASE EVENT DATE: 2020
